FAERS Safety Report 16844731 (Version 1)
Quarter: 2019Q4

REPORT INFORMATION
  Report Type: Spontaneous
  Country: US (occurrence: US)
  Receive Date: 20190924
  Receipt Date: 20190924
  Transmission Date: 20200122
  Serious: Yes (Life-Threatening)
  Sender: FDA-Public Use
  Company Number: None

PATIENT
  Age: 71 Year
  Sex: Male
  Weight: 113.9 kg

DRUGS (1)
  1. ANDEXXA [Suspect]
     Active Substance: ANDEXANET ALFA

REACTIONS (3)
  - Cardiomyopathy [None]
  - Deep vein thrombosis [None]
  - Disseminated intravascular coagulation [None]

NARRATIVE: CASE EVENT DATE: 20190921
